FAERS Safety Report 18992930 (Version 1)
Quarter: 2021Q1

REPORT INFORMATION
  Report Type: Spontaneous
  Country: FR (occurrence: FR)
  Receive Date: 20210310
  Receipt Date: 20210310
  Transmission Date: 20210420
  Serious: Yes (Other)
  Sender: FDA-Public Use
  Company Number: FR-ASTRAZENECA-2021A102979

PATIENT
  Age: 407 Month
  Sex: Male
  Weight: 76 kg

DRUGS (3)
  1. CELLCEPT [Suspect]
     Active Substance: MYCOPHENOLATE MOFETIL\MYCOPHENOLATE MOFETIL HYDROCHLORIDE
     Indication: C3 GLOMERULOPATHY
     Dosage: UNKNOWN
     Route: 065
  2. TRANDOLAPRIL: ACE INHIBITOR [Concomitant]
     Dosage: AT MAXIMUM DOSAGE
  3. FORXIGA [Suspect]
     Active Substance: DAPAGLIFLOZIN
     Indication: PROTEINURIA
     Dosage: UNKNOWN
     Route: 048
     Dates: start: 20210108, end: 202101

REACTIONS (5)
  - Vomiting [Recovered/Resolved]
  - Anaemia [Recovering/Resolving]
  - Nausea [Recovered/Resolved]
  - Off label use [Recovered/Resolved]
  - Malaise [Recovered/Resolved]

NARRATIVE: CASE EVENT DATE: 202101
